FAERS Safety Report 10141565 (Version 2)
Quarter: 2014Q2

REPORT INFORMATION
  Report Type: Spontaneous
  Country: US (occurrence: US)
  Receive Date: 20140429
  Receipt Date: 20140603
  Transmission Date: 20141212
  Serious: Yes (Other)
  Sender: FDA-Public Use
  Company Number: US-009507513-1404USA013453

PATIENT
  Age: 87 Year
  Sex: Female
  Weight: 58.96 kg

DRUGS (4)
  1. OXYTROL FOR WOMEN [Suspect]
     Indication: PRODUCT USED FOR UNKNOWN INDICATION
     Dosage: 1 DF, UNKNOWN
     Route: 062
     Dates: start: 201403
  2. OXYTROL FOR WOMEN [Suspect]
     Indication: HYPERTONIC BLADDER
     Dosage: 1 DF, UNKNOWN
     Route: 062
     Dates: start: 201403
  3. OXYTROL FOR WOMEN [Suspect]
     Dosage: UNK, EVERY FOUR DAYS
     Route: 062
     Dates: start: 201403
  4. OXYTROL FOR WOMEN [Suspect]
     Dosage: 1 UNK, EVERY FOUR DAYS
     Route: 062
     Dates: start: 201403

REACTIONS (3)
  - Cerebrovascular accident [Unknown]
  - Pruritus allergic [Recovered/Resolved]
  - Application site erythema [Recovered/Resolved]
